FAERS Safety Report 7080710-0 (Version None)
Quarter: 2010Q4

REPORT INFORMATION
  Report Type: 
  Country: None (occurrence: None)
  Receive Date: 20101103
  Receipt Date: 20101025
  Transmission Date: 20110411
  Serious: Yes (Other)
  Sender: FDA-Public Use
  Company Number: CA-ASTRAZENECA-2010SE48962

PATIENT
  Age: 49 Year
  Sex: Female

DRUGS (7)
  1. CRESTOR [Suspect]
     Indication: HYPERCHOLESTEROLAEMIA
     Route: 048
  2. ASPIRIN [Concomitant]
  3. FLEXERIL [Concomitant]
  4. ARTHROTEC [Concomitant]
  5. RANITIDINE [Concomitant]
  6. MORPHINE [Concomitant]
  7. DEPO-MEDROL [Concomitant]

REACTIONS (1)
  - ALOPECIA [None]
